FAERS Safety Report 6283733-4 (Version None)
Quarter: 2009Q3

REPORT INFORMATION
  Report Type: 
  Country: None (occurrence: None)
  Receive Date: 20090724
  Receipt Date: 20090717
  Transmission Date: 20100115
  Serious: Yes (Other)
  Sender: FDA-Public Use
  Company Number: JP-MERCK-0902USA02486

PATIENT
  Age: 77 Year
  Sex: Male

DRUGS (6)
  1. HYZAAR [Suspect]
     Route: 048
     Dates: start: 20080828, end: 20090212
  2. NORVASC [Concomitant]
     Route: 048
  3. LUPRAC [Concomitant]
     Route: 048
  4. URINORM [Concomitant]
     Route: 048
  5. CRESTOR [Concomitant]
     Route: 048
  6. ARTIST [Concomitant]
     Route: 048
     Dates: start: 20080828

REACTIONS (2)
  - MELANODERMIA [None]
  - PHOTODERMATOSIS [None]
